FAERS Safety Report 9470755 (Version 1)
Quarter: 2013Q3

REPORT INFORMATION
  Report Type: Spontaneous
  Country: US (occurrence: US)
  Receive Date: 20130822
  Receipt Date: 20130822
  Transmission Date: 20140515
  Serious: No
  Sender: FDA-Public Use
  Company Number: US-SANOFI-AVENTIS-2013SA069706

PATIENT
  Sex: Female

DRUGS (4)
  1. ZALTRAP [Suspect]
     Indication: COLORECTAL CANCER METASTATIC
     Dosage: TAKEN FROM- EITHER THIS MORNING OR YESTERDAY
     Route: 065
  2. 5-FU [Concomitant]
  3. LEUCOVORIN [Concomitant]
  4. IRINOTECAN [Concomitant]

REACTIONS (2)
  - Dyspnoea [Recovered/Resolved]
  - Blood pressure increased [Recovered/Resolved]
